FAERS Safety Report 7561252-2 (Version None)
Quarter: 2011Q2

REPORT INFORMATION
  Report Type: 
  Country: None (occurrence: None)
  Receive Date: 20110621
  Receipt Date: 20110608
  Transmission Date: 20111010
  Serious: Yes (Other)
  Sender: FDA-Public Use
  Company Number: US-BRACCO-004468

PATIENT
  Sex: Male
  Weight: 77.1 kg

DRUGS (55)
  1. OMNISCAN [Suspect]
     Indication: FISTULOGRAM
     Route: 042
     Dates: start: 20060804, end: 20060804
  2. LIPITOR [Concomitant]
  3. LANTUS [Concomitant]
  4. TYLENOL-500 [Concomitant]
  5. PROHANCE [Suspect]
     Indication: COMPUTERISED TOMOGRAM HEAD
     Dates: start: 20040519, end: 20040519
  6. MAGNEVIST [Suspect]
     Indication: NUCLEAR MAGNETIC RESONANCE IMAGING
     Dates: start: 20061017, end: 20061017
  7. TRENTAL [Concomitant]
  8. PROCARDIA XL [Concomitant]
  9. COUMADIN [Concomitant]
  10. LASIX [Concomitant]
  11. BENADRYL [Concomitant]
  12. PENTOXIFYLLINE [Concomitant]
  13. TAMBOCOR [Concomitant]
  14. GLUCOTROL [Concomitant]
  15. LYRICA [Concomitant]
  16. FERROUS SULFATE TAB [Concomitant]
     Dates: start: 20060812
  17. SEVELAMER [Concomitant]
  18. VENOFER [Concomitant]
     Route: 042
     Dates: start: 20061016
  19. ACTOS [Concomitant]
  20. ZYVOX [Concomitant]
  21. STARLIX [Concomitant]
  22. EPOGEN [Concomitant]
  23. NORVASC [Concomitant]
     Route: 048
  24. NICOTINE [Concomitant]
  25. MAGNEVIST [Suspect]
     Dates: start: 20060519, end: 20060519
  26. OMNISCAN [Suspect]
     Indication: NUCLEAR MAGNETIC RESONANCE IMAGING
     Route: 042
     Dates: start: 20060805, end: 20060805
  27. COREG [Concomitant]
  28. AVELOX [Concomitant]
  29. NATEGLINIDE [Concomitant]
  30. AMITRIPTYLINE HCL [Concomitant]
  31. LOPID [Concomitant]
  32. RESTORIL [Concomitant]
  33. RENAGEL [Concomitant]
  34. ARANESP [Concomitant]
  35. CLONIDINE [Concomitant]
  36. PRINIVIL [Concomitant]
  37. NEXIUM [Concomitant]
  38. ELAVIL [Concomitant]
  39. MAGNEVIST [Suspect]
     Indication: NUCLEAR MAGNETIC RESONANCE IMAGING BRAIN
     Dates: start: 20061013, end: 20061013
  40. SYNTHROID [Concomitant]
  41. K-DUR [Concomitant]
  42. VANCOMYCIN [Concomitant]
  43. ACCUPRIL [Concomitant]
  44. LAMISIL [Concomitant]
  45. ALL OTHER THERAPEUTIC PRODUCTS [Concomitant]
  46. PERCOCET [Concomitant]
  47. NEPHROCAPS [Concomitant]
  48. CONTRAST MEDIA [Suspect]
     Indication: NUCLEAR MAGNETIC RESONANCE IMAGING
     Dates: start: 20040519, end: 20040519
  49. PROCRIT [Concomitant]
  50. ATENOLOL [Concomitant]
  51. BACTRIM DS [Concomitant]
  52. PLETAL [Concomitant]
  53. PHOSLO [Concomitant]
  54. GENTAMICIN [Concomitant]
  55. SODIUM BICARBONATE [Concomitant]

REACTIONS (1)
  - NEPHROGENIC SYSTEMIC FIBROSIS [None]
